FAERS Safety Report 24757478 (Version 1)
Quarter: 2024Q4

REPORT INFORMATION
  Report Type: Spontaneous
  Country: US (occurrence: US)
  Receive Date: 20241220
  Receipt Date: 20241220
  Transmission Date: 20250115
  Serious: Yes (Other)
  Sender: MERCK
  Company Number: US-009507513-2409USA005380

PATIENT
  Sex: Female
  Weight: 79.4 kg

DRUGS (19)
  1. WINREVAIR [Suspect]
     Active Substance: SOTATERCEPT-CSRK
     Dosage: UNK
     Dates: start: 20240825
  2. TREPROSTINIL SODIUM [Suspect]
     Active Substance: TREPROSTINIL SODIUM
     Indication: Pulmonary arterial hypertension
     Dosage: 0.049 MICROGRAM PER KILOGRAM
     Route: 041
     Dates: start: 20210409
  3. ZOLOFT [Concomitant]
     Active Substance: SERTRALINE HYDROCHLORIDE
  4. LASIX [Concomitant]
     Active Substance: FUROSEMIDE
  5. PFIZER-BIONTECH COVID-19 VACCINE [Concomitant]
     Active Substance: TOZINAMERAN
  6. ALBUTEROL SULFATE [Concomitant]
     Active Substance: ALBUTEROL SULFATE
  7. POTASSIUM CHLORIDE [Concomitant]
     Active Substance: POTASSIUM CHLORIDE
  8. ELIQUIS [Concomitant]
     Active Substance: APIXABAN
  9. OPSUMIT [Concomitant]
     Active Substance: MACITENTAN
  10. OXYGEN [Concomitant]
     Active Substance: OXYGEN
  11. COLCHICINE [Concomitant]
     Active Substance: COLCHICINE
  12. REVATIO [Concomitant]
     Active Substance: SILDENAFIL CITRATE
  13. FOSAMAX [Concomitant]
     Active Substance: ALENDRONATE SODIUM
  14. DIGOXIN [Concomitant]
     Active Substance: DIGOXIN
  15. ONDANSETRON [Concomitant]
     Active Substance: ONDANSETRON
  16. HEPARIN SODIUM [Concomitant]
     Active Substance: HEPARIN SODIUM
  17. SODIUM CHLORIDE [Concomitant]
     Active Substance: SODIUM CHLORIDE
  18. SPIRONOLACTONE [Concomitant]
     Active Substance: SPIRONOLACTONE
  19. LORATADINE [Concomitant]
     Active Substance: LORATADINE

REACTIONS (6)
  - Syncope [Unknown]
  - Feeling abnormal [Recovered/Resolved]
  - Ageusia [Recovered/Resolved]
  - Dysgeusia [Recovered/Resolved]
  - Dehydration [Unknown]
  - Dizziness [Unknown]

NARRATIVE: CASE EVENT DATE: 20240101
